FAERS Safety Report 8054301-9 (Version None)
Quarter: 2012Q1

REPORT INFORMATION
  Report Type: 
  Country: None (occurrence: None)
  Receive Date: 20120118
  Receipt Date: 20120109
  Transmission Date: 20120608
  Serious: Yes (Disabling)
  Sender: FDA-Public Use
  Company Number: FR-ASTRAZENECA-2012SE02626

PATIENT
  Age: 41 Year
  Sex: Male

DRUGS (7)
  1. NEBIVOLOL HCL [Suspect]
     Route: 048
     Dates: start: 20091201
  2. PREZISTA [Suspect]
     Route: 048
     Dates: start: 20080601
  3. ISENTRESS [Suspect]
     Route: 048
     Dates: start: 20080601
  4. INTELENCE [Suspect]
     Route: 048
     Dates: start: 20080601
  5. CRESTOR [Suspect]
     Route: 048
     Dates: start: 20100101
  6. NORVIR [Suspect]
     Route: 048
     Dates: start: 20080601
  7. VALACYCLOVIR HYDROCHLORIDE [Suspect]
     Route: 048
     Dates: start: 19970101

REACTIONS (1)
  - POLLAKIURIA [None]
